FAERS Safety Report 6314784-9 (Version None)
Quarter: 2009Q3

REPORT INFORMATION
  Report Type: 
  Country: None (occurrence: None)
  Receive Date: 20090819
  Receipt Date: 20090812
  Transmission Date: 20100115
  Serious: Yes (Death, Other)
  Sender: FDA-Public Use
  Company Number: GB-ROCHE-645316

PATIENT
  Sex: Female
  Weight: 80 kg

DRUGS (6)
  1. CAPECITABINE [Suspect]
     Indication: COLON CANCER
     Dosage: THE PATIENT DID NOT TAKE ANY FURTHER MEDICATION.
     Route: 048
     Dates: start: 20060219
  2. BEVACIZUMAB [Suspect]
     Indication: COLON CANCER
     Dosage: STUDY DRUG WITHDRAWN, FORM: INFUSION
     Route: 042
     Dates: start: 20060219
  3. ASPIRIN [Suspect]
     Indication: THROMBOSIS PROPHYLAXIS
     Route: 048
     Dates: start: 20060101, end: 20090710
  4. DICLOFENAC [Suspect]
     Indication: ANALGESIC THERAPY
     Route: 048
     Dates: start: 20090101, end: 20090710
  5. METFORMIN [Concomitant]
     Route: 048
     Dates: end: 20090710
  6. BLOOD TRANSFUSION [Concomitant]
     Dosage: DOSE: 5 UNITS.
     Route: 042
     Dates: end: 20090714

REACTIONS (2)
  - DUODENAL ULCER HAEMORRHAGE [None]
  - OESOPHAGITIS [None]
